FAERS Safety Report 11224747 (Version 2)
Quarter: 2015Q3

REPORT INFORMATION
  Report Type: Spontaneous
  Country: US (occurrence: US)
  Receive Date: 20150629
  Receipt Date: 20150817
  Transmission Date: 20151125
  Serious: No
  Sender: FDA-Public Use
  Company Number: US-PFIZER INC-2015214992

PATIENT
  Sex: Female

DRUGS (2)
  1. CELEBREX [Suspect]
     Active Substance: CELECOXIB
     Indication: ARTHRITIS
     Dosage: 200 MG, 2X/DAY
  2. DOXYCYCLINE HYCLATE. [Suspect]
     Active Substance: DOXYCYCLINE HYCLATE
     Indication: ARTHRITIS
     Dosage: TAKING LOW DOSE OF DOXYCYCLINE ON MONDAY, WEDNESDAY, AND FRIDAY, BUT NOT OVER THE WEEKEND

REACTIONS (2)
  - Disease progression [Unknown]
  - Arthritis [Unknown]
